FAERS Safety Report 5306019-0 (Version None)
Quarter: 2007Q2

REPORT INFORMATION
  Report Type: 
  Country: None (occurrence: None)
  Receive Date: 20070416
  Receipt Date: 20070406
  Transmission Date: 20071010
  Serious: Yes (Life-Threatening, Hospitalization)
  Sender: FDA-Public Use
  Company Number: 2006-05-1127

PATIENT
  Age: 65 Year
  Sex: Female

DRUGS (4)
  1. PEG-INTRON [Suspect]
     Indication: HEPATITIS C
     Dosage: 30 MCG; QW; SC
     Route: 058
     Dates: start: 20060424, end: 20060424
  2. REBETOL [Suspect]
     Indication: HEPATITIS C
     Dosage: 200 MG; PO
     Route: 048
     Dates: start: 20060424, end: 20060430
  3. VOLTAREN [Suspect]
     Indication: DRUG USE FOR UNKNOWN INDICATION
     Dosage: 50 MG; RTL
     Dates: start: 20060503
  4. LOXONIN [Concomitant]

REACTIONS (4)
  - ACUTE HEPATIC FAILURE [None]
  - CONTINUOUS HAEMODIAFILTRATION [None]
  - NECK INJURY [None]
  - RENAL FAILURE ACUTE [None]
